FAERS Safety Report 9222950 (Version 1)
Quarter: 2013Q2

REPORT INFORMATION
  Report Type: Spontaneous
  Country: GB (occurrence: GB)
  Receive Date: 20130410
  Receipt Date: 20130410
  Transmission Date: 20140414
  Serious: Yes (Hospitalization, Other)
  Sender: FDA-Public Use
  Company Number: GB-PFIZER INC-2013112722

PATIENT
  Age: 87 Year
  Sex: Male

DRUGS (5)
  1. PHENYTOIN [Suspect]
     Indication: EPILEPSY
     Dosage: 200 MG, 1X/DAY
  2. ETHAMBUTOL [Suspect]
     Indication: TUBERCULOSIS
     Dosage: UNK
  3. RIFAMPICIN [Suspect]
     Indication: TUBERCULOSIS
     Dosage: UNK
  4. ISONIAZID [Suspect]
     Indication: TUBERCULOSIS
     Dosage: UNK
  5. PYRAZINAMIDE [Suspect]
     Indication: TUBERCULOSIS
     Dosage: UNK

REACTIONS (12)
  - Toxicity to various agents [Recovering/Resolving]
  - Confusional state [Recovered/Resolved]
  - Dizziness [Recovering/Resolving]
  - Nausea [Recovering/Resolving]
  - Vomiting [Recovering/Resolving]
  - Dysarthria [Recovered/Resolved]
  - Dysphagia [Recovered/Resolved]
  - Nystagmus [Recovered/Resolved]
  - Intention tremor [Recovered/Resolved]
  - Ataxia [Recovered/Resolved]
  - Past-pointing [Recovering/Resolving]
  - Decreased appetite [Recovering/Resolving]
